FAERS Safety Report 7510708-7 (Version None)
Quarter: 2011Q2

REPORT INFORMATION
  Report Type: 
  Country: None (occurrence: None)
  Receive Date: 20110530
  Receipt Date: 20110517
  Transmission Date: 20111010
  Serious: Yes (Other)
  Sender: FDA-Public Use
  Company Number: US-AMGEN-USASP2011007755

PATIENT
  Age: 43 Year
  Sex: Male
  Weight: 97.506 kg

DRUGS (1)
  1. ENBREL [Suspect]
     Indication: PSORIASIS
     Dosage: 50 MG, QWK
     Route: 058
     Dates: start: 20050627

REACTIONS (7)
  - AMNESIA [None]
  - BRONCHITIS [None]
  - PSORIASIS [None]
  - CONVULSION [None]
  - LOSS OF CONSCIOUSNESS [None]
  - CHOKING [None]
  - COUGH [None]
